FAERS Safety Report 7801386-8 (Version None)
Quarter: 2011Q4

REPORT INFORMATION
  Report Type: 
  Country: None (occurrence: None)
  Receive Date: 20111007
  Receipt Date: 20110527
  Transmission Date: 20120403
  Serious: Yes (Other)
  Sender: FDA-Public Use
  Company Number: US-BAYER-201027821NA

PATIENT
  Age: 29 Year
  Sex: Female
  Weight: 70.455 kg

DRUGS (5)
  1. ZYRTEC [Concomitant]
     Indication: MULTIPLE ALLERGIES
     Dates: start: 20071001
  2. SINGULAIR [Concomitant]
     Indication: ASTHMA
     Dates: start: 20050501
  3. ADVAIR DISKUS 100/50 [Concomitant]
  4. YAZ [Suspect]
     Indication: CONTRACEPTION
     Route: 048
     Dates: start: 20071208, end: 20080914
  5. YAZ [Suspect]
     Indication: PREMENSTRUAL SYNDROME

REACTIONS (3)
  - HEADACHE [None]
  - DIZZINESS [None]
  - CEREBROVASCULAR ACCIDENT [None]
